FAERS Safety Report 15341424 (Version 2)
Quarter: 2018Q3

REPORT INFORMATION
  Report Type: Report from Study
  Country: ZA (occurrence: ZA)
  Receive Date: 20180901
  Receipt Date: 20180913
  Transmission Date: 20181010
  Serious: Yes (Hospitalization)
  Sender: FDA-Public Use
  Company Number: ZA-AMGEN-ZAFCT2018120753

PATIENT
  Age: 43 Year
  Sex: Female
  Weight: 56.6 kg

DRUGS (19)
  1. ATORVASTATIN [Concomitant]
     Active Substance: ATORVASTATIN
     Indication: LIPID METABOLISM DISORDER
     Dosage: 30 MUG, UNK
     Route: 048
     Dates: start: 20170727
  2. GAVISCON [Concomitant]
     Active Substance: ALUMINUM HYDROXIDE\MAGNESIUM CARBONATE
     Dosage: 10 ML, UNK
     Route: 048
     Dates: start: 20180613
  3. SPECTRAPAIN [Concomitant]
     Dosage: 2 UNK, UNK
     Route: 048
     Dates: start: 20180718
  4. CHLORPHENIRAMINE. [Concomitant]
     Active Substance: CHLORPHENIRAMINE
     Dosage: 4 MUG, UNK
     Route: 048
     Dates: start: 20180101
  5. EVOLOCUMAB [Suspect]
     Active Substance: EVOLOCUMAB
     Indication: LIPID METABOLISM DISORDER
     Dosage: 420 MG, QMO
     Route: 058
     Dates: start: 20180502, end: 20180626
  6. LOPERAMIDE [Concomitant]
     Active Substance: LOPERAMIDE
     Dosage: 2 MG, UNK
     Route: 048
     Dates: start: 20180614
  7. VITAMIN C [Concomitant]
     Active Substance: ASCORBIC ACID
     Dosage: 500 MG, UNK
     Route: 048
     Dates: start: 20180502
  8. BETAMETHASONE. [Concomitant]
     Active Substance: BETAMETHASONE
     Dosage: 100 MG, UNK
     Route: 061
     Dates: start: 20180101
  9. DICLOFENAC [Concomitant]
     Active Substance: DICLOFENAC
     Dosage: 50 MG, UNK
     Route: 048
     Dates: start: 20180718
  10. IBUPROFEN. [Concomitant]
     Active Substance: IBUPROFEN
     Dosage: 400 MG, UNK
     Route: 048
     Dates: start: 20180517, end: 20180726
  11. CONTROMET [Concomitant]
     Dosage: 10 MG, UNK
     Route: 048
     Dates: start: 20180718
  12. PARACETAMOL [Concomitant]
     Active Substance: ACETAMINOPHEN
     Dosage: 1 G, UNK
     Route: 048
     Dates: start: 20180502
  13. ADVANTAN [Concomitant]
     Active Substance: METHYLPREDNISOLONE ACEPONATE
     Dosage: 1 UNK, UNK
     Route: 061
     Dates: start: 20180101
  14. SUNSCREEN [Concomitant]
     Active Substance: HOMOSALATE\OCTINOXATE\OCTISALATE\OXYBENZONE\TITANIUM DIOXIDE
     Dosage: 1 UNK, UNK
     Route: 061
     Dates: start: 20180101
  15. 3.5 ML PERSONAL INJECTOR [Suspect]
     Active Substance: DEVICE
     Indication: LIPID METABOLISM DISORDER
     Dosage: UNK
     Route: 058
     Dates: start: 20180502, end: 20180626
  16. CORTIDERM [Concomitant]
     Dosage: 1 UNK, UNK
     Route: 061
     Dates: start: 20180101
  17. BUSCOPAN [Concomitant]
     Active Substance: BUTYLSCOPOLAMINE BROMIDE
     Dosage: 10 MG, UNK
     Route: 048
     Dates: start: 20180614
  18. PANTOPRAZOLE [Concomitant]
     Active Substance: PANTOPRAZOLE
     Dosage: 40 MG, UNK
     Route: 048
     Dates: start: 20180718
  19. ATRIPLA [Concomitant]
     Active Substance: EFAVIRENZ\EMTRICITABINE\TENOFOVIR DISOPROXIL FUMARATE
     Dosage: 1 UNK, UNK
     Route: 048
     Dates: start: 20120612

REACTIONS (1)
  - Addison^s disease [Not Recovered/Not Resolved]

NARRATIVE: CASE EVENT DATE: 20180825
